FAERS Safety Report 10898026 (Version 1)
Quarter: 2015Q1

REPORT INFORMATION
  Report Type: Report from Study
  Country: US (occurrence: US)
  Receive Date: 20150309
  Receipt Date: 20150309
  Transmission Date: 20150721
  Serious: No
  Sender: FDA-Public Use
  Company Number: US-ABBVIE-14P-163-1215090-00

PATIENT
  Sex: Female
  Weight: 57.2 kg

DRUGS (4)
  1. ANTIHYPERTENSIVES [Concomitant]
     Active Substance: UNSPECIFIED INGREDIENT
     Indication: HYPERTENSION
  2. CALCIUM [Concomitant]
     Active Substance: CALCIUM
     Indication: MINERAL SUPPLEMENTATION
  3. MULTIVITAMIN [Concomitant]
     Active Substance: VITAMINS
     Indication: VITAMIN SUPPLEMENTATION
  4. LUPRON DEPOT [Suspect]
     Active Substance: LEUPROLIDE ACETATE
     Indication: ENDOMETRIOSIS
     Dates: start: 2010

REACTIONS (1)
  - Hot flush [Recovered/Resolved]

NARRATIVE: CASE EVENT DATE: 2010
